FAERS Safety Report 12822129 (Version 1)
Quarter: 2016Q4

REPORT INFORMATION
  Report Type: Report from Study
  Country: US (occurrence: US)
  Receive Date: 20161007
  Receipt Date: 20161007
  Transmission Date: 20170207
  Serious: Yes (Other)
  Sender: FDA-Public Use
  Company Number: US-AMGEN-USASL2016136740

PATIENT
  Age: 55 Year
  Sex: Female

DRUGS (2)
  1. ENBREL [Suspect]
     Active Substance: ETANERCEPT
     Indication: PSORIATIC ARTHROPATHY
     Dosage: UNK UNK, 2 TIMES/WK
     Route: 065
  2. ENBREL [Suspect]
     Active Substance: ETANERCEPT
     Indication: PSORIASIS
     Dosage: UNK
     Route: 065

REACTIONS (13)
  - Diarrhoea [Unknown]
  - Injury [Unknown]
  - Hormone level abnormal [Unknown]
  - Constipation [Unknown]
  - Muscle atrophy [Unknown]
  - Stress [Unknown]
  - Decreased appetite [Unknown]
  - Hypersensitivity [Unknown]
  - Fatigue [Unknown]
  - Malaise [Unknown]
  - Drug dose omission [Unknown]
  - Psoriasis [Unknown]
  - Depression [Unknown]
